FAERS Safety Report 20904809 (Version 1)
Quarter: 2022Q2

REPORT INFORMATION
  Report Type: Spontaneous
  Country: CH (occurrence: CH)
  Receive Date: 20220602
  Receipt Date: 20220602
  Transmission Date: 20220721
  Serious: Yes (Other)
  Sender: FDA-Public Use
  Company Number: None

PATIENT
  Age: 58 Year
  Sex: Female

DRUGS (3)
  1. REPATHA [Suspect]
     Active Substance: EVOLOCUMAB
     Indication: Product used for unknown indication
     Dosage: 1 DOSAGE FORM, QD
     Route: 058
     Dates: start: 20211019, end: 20211019
  2. REPATHA [Suspect]
     Active Substance: EVOLOCUMAB
     Dosage: 1 DOSAGE FORM, QD
     Route: 058
     Dates: start: 20211102, end: 20211102
  3. REPATHA [Suspect]
     Active Substance: EVOLOCUMAB
     Dosage: 1 DOSAGE FORM, QD
     Route: 058
     Dates: start: 20211116, end: 20211116

REACTIONS (2)
  - Abdominal pain [Recovering/Resolving]
  - Decreased appetite [Recovering/Resolving]

NARRATIVE: CASE EVENT DATE: 20211101
